FAERS Safety Report 13429737 (Version 2)
Quarter: 2017Q2

REPORT INFORMATION
  Report Type: Report from Study
  Country: US (occurrence: US)
  Receive Date: 20170412
  Receipt Date: 20170426
  Transmission Date: 20170830
  Serious: No
  Sender: FDA-Public Use
  Company Number: US-AMGEN-USASL2017020343

PATIENT
  Age: 74 Year
  Sex: Male
  Weight: 90.7 kg

DRUGS (11)
  1. REPATHA [Suspect]
     Active Substance: EVOLOCUMAB
     Indication: PRODUCT USED FOR UNKNOWN INDICATION
     Dosage: 140 MG/ML, QD
     Route: 058
     Dates: start: 20160930
  2. DEPO-TESTOSTERONE [Concomitant]
     Active Substance: TESTOSTERONE CYPIONATE
     Dosage: 100 MG/ML, QMO
     Route: 030
  3. DILTIAZEM. [Concomitant]
     Active Substance: DILTIAZEM
     Dosage: 120 MG (1 TABLET), QD
     Route: 048
  4. MUPIROCIN. [Concomitant]
     Active Substance: MUPIROCIN
     Dosage: ONE APPLICATION, TID
     Route: 061
  5. BACTRIM [Concomitant]
     Active Substance: SULFAMETHOXAZOLE\TRIMETHOPRIM
     Dosage: 800 TO 160 MG ONE TABLET, BID
     Route: 048
  6. DIGOXIN. [Concomitant]
     Active Substance: DIGOXIN
     Dosage: 125 MG (2 TABLETS), QD
     Route: 048
  7. XARELTO [Concomitant]
     Active Substance: RIVAROXABAN
     Dosage: 20 MG (1 TABLET), QD
     Route: 048
  8. DESONIDE. [Concomitant]
     Active Substance: DESONIDE
     Dosage: ONE APPLICATION, BID
     Route: 061
  9. ASPIRIN. [Concomitant]
     Active Substance: ASPIRIN
     Dosage: 81 MG, QD
     Route: 048
  10. FLECAINIDE [Concomitant]
     Active Substance: FLECAINIDE
     Dosage: 200 MG (2 TABLETS), TID
     Route: 048
  11. CEPHALEXIN. [Concomitant]
     Active Substance: CEPHALEXIN
     Dosage: 500 MG (2 CAPSULES), QID
     Route: 048

REACTIONS (6)
  - Transient acantholytic dermatosis [Unknown]
  - Actinic keratosis [Unknown]
  - Perivascular dermatitis [Unknown]
  - Off label use [Unknown]
  - Cough [Unknown]
  - Injection site reaction [Unknown]
